FAERS Safety Report 9529371 (Version 2)
Quarter: 2013Q3

REPORT INFORMATION
  Report Type: Spontaneous
  Country: JP (occurrence: JP)
  Receive Date: 20130917
  Receipt Date: 20130917
  Transmission Date: 20140515
  Serious: Yes (Life-Threatening, Hospitalization, Other)
  Sender: FDA-Public Use
  Company Number: JP-009507513-1308JPN011152

PATIENT
  Age: 50 Year
  Sex: Female
  Weight: 65 kg

DRUGS (11)
  1. BRIDION [Suspect]
     Dosage: 100 MG, QD
     Route: 042
     Dates: start: 20130816, end: 20130816
  2. ESLAX [Concomitant]
     Indication: NEUROMUSCULAR BLOCKING THERAPY
     Dosage: 30 MG, QD,IV UNSPECIFIED
     Route: 042
     Dates: start: 20130816, end: 20130816
  3. ESLAX [Concomitant]
     Dosage: 10 MG, QD,IV UNSPECIFIED
     Route: 042
     Dates: start: 20130816, end: 20130816
  4. ATROPINE [Concomitant]
     Indication: GENERAL ANAESTHESIA
     Dosage: 0.5 MG, QD,IV UNSPECIFIED
     Route: 042
     Dates: start: 20130816, end: 20130816
  5. ULTIVA [Concomitant]
     Indication: GENERAL ANAESTHESIA
     Dosage: DOSAGE TEXT: 0.5-0.1 MICROGRAMS/KG/MIN
     Route: 041
     Dates: start: 20130816, end: 20130816
  6. FENTANYL [Concomitant]
     Indication: GENERAL ANAESTHESIA
     Dosage: 100 MICROGRAM, QD
     Route: 042
     Dates: start: 20130816, end: 20130816
  7. DIPRIVAN [Concomitant]
     Indication: GENERAL ANAESTHESIA
     Dosage: 500 MG, QD
     Route: 042
     Dates: start: 20130816, end: 20130816
  8. CEFMETAZOLE [Concomitant]
     Indication: INFECTION PROPHYLAXIS
     Dosage: 1 G, QD
     Route: 042
     Dates: start: 20130816, end: 20130816
  9. POLARAMINE (DEXCHLORPHENIRAMINE MALEATE) [Concomitant]
     Dosage: 1 DF, QD
     Route: 051
     Dates: start: 20130816, end: 20130816
  10. SAXIZON [Concomitant]
     Dosage: 200 MG, QD
     Route: 042
     Dates: start: 20130816, end: 20130816
  11. NEOSYNESIN [Concomitant]
     Dosage: 0.2 MG, QD
     Route: 051
     Dates: start: 20130816, end: 20130816

REACTIONS (5)
  - Anaphylactic reaction [Recovering/Resolving]
  - Altered state of consciousness [Recovered/Resolved]
  - Vomiting [Recovered/Resolved]
  - Abdominal pain [Recovered/Resolved]
  - Generalised oedema [Recovering/Resolving]
